FAERS Safety Report 6888435-9 (Version None)
Quarter: 2010Q3

REPORT INFORMATION
  Report Type: 
  Country: None (occurrence: None)
  Receive Date: 20100730
  Receipt Date: 20100721
  Transmission Date: 20110219
  Serious: Yes (Hospitalization)
  Sender: FDA-Public Use
  Company Number: US-ELI_LILLY_AND_COMPANY-US201007005941

PATIENT
  Sex: Female
  Weight: 75.737 kg

DRUGS (10)
  1. BYETTA [Suspect]
     Indication: TYPE 2 DIABETES MELLITUS
     Dosage: 5 UG, 2/D
     Route: 058
  2. BYETTA [Suspect]
     Dosage: 10 UG, 2/D
     Route: 058
  3. APIDRA [Concomitant]
     Indication: TYPE 2 DIABETES MELLITUS
     Dosage: UNK, DAILY (1/D)
     Route: 058
  4. LANTUS [Concomitant]
     Indication: TYPE 2 DIABETES MELLITUS
     Dosage: UNK, DAILY (1/D)
     Route: 058
  5. GLUCOTROL XL [Concomitant]
     Indication: TYPE 2 DIABETES MELLITUS
     Dosage: UNK, DAILY (1/D)
     Route: 048
  6. SYNTHROID [Concomitant]
     Dosage: UNK, DAILY (1/D)
     Route: 048
  7. TOPROL-XL [Concomitant]
     Dosage: UNK, DAILY (1/D)
     Route: 048
  8. COZAAR [Concomitant]
     Dosage: UNK, DAILY (1/D)
     Route: 048
  9. ZANTAC [Concomitant]
     Dosage: UNK, AS NEEDED
  10. LIPITOR [Concomitant]
     Dosage: UNK, DAILY (1/D)
     Route: 048

REACTIONS (10)
  - BLOOD CHOLESTEROL INCREASED [None]
  - BLOOD GLUCOSE INCREASED [None]
  - DIABETIC KETOACIDOSIS [None]
  - GLYCOSYLATED HAEMOGLOBIN INCREASED [None]
  - INTENTIONAL DRUG MISUSE [None]
  - OFF LABEL USE [None]
  - RETINAL DISORDER [None]
  - VISUAL ACUITY REDUCED [None]
  - WEIGHT DECREASED [None]
  - WEIGHT INCREASED [None]
